FAERS Safety Report 17209520 (Version 1)
Quarter: 2019Q4

REPORT INFORMATION
  Report Type: Spontaneous
  Country: US (occurrence: US)
  Receive Date: 20191227
  Receipt Date: 20191227
  Transmission Date: 20200122
  Serious: No
  Sender: FDA-Public Use
  Company Number: US-TORRENT-00007605

PATIENT
  Age: 68 Year
  Sex: Female
  Weight: 63 kg

DRUGS (2)
  1. CARBAMAZEPINE. [Concomitant]
     Active Substance: CARBAMAZEPINE
     Indication: TRIGEMINAL NEURALGIA
     Dosage: UNKNOWN
  2. CARBAMAZEPINE. [Suspect]
     Active Substance: CARBAMAZEPINE
     Indication: TRIGEMINAL NEURALGIA
     Dosage: TWO TABLETS OF 200 MG IN THE MORNING (400 MG) AND ONE TABLETS OF 200 MG IN NIGHT.
     Dates: start: 20181229, end: 20190202

REACTIONS (11)
  - Therapeutic response decreased [Unknown]
  - Dysphagia [Recovered/Resolved]
  - Pain [Recovered/Resolved]
  - Trigeminal neuralgia [Recovered/Resolved]
  - Impaired driving ability [Recovered/Resolved]
  - Dizziness [Recovered/Resolved]
  - Impaired work ability [Recovered/Resolved]
  - Product substitution issue [Unknown]
  - Dysarthria [Recovered/Resolved]
  - Nausea [Recovered/Resolved]
  - Lethargy [Recovered/Resolved]

NARRATIVE: CASE EVENT DATE: 20181229
